FAERS Safety Report 5178018-3 (Version None)
Quarter: 2006Q4

REPORT INFORMATION
  Report Type: 
  Country: None (occurrence: None)
  Receive Date: 20061208
  Receipt Date: 20061106
  Transmission Date: 20070319
  Serious: Yes (Other)
  Sender: FDA-Public Use
  Company Number: 2006135479

PATIENT
  Age: 74 Year
  Sex: Female
  Weight: 70.3075 kg

DRUGS (3)
  1. CELEBREX [Suspect]
     Indication: ARTHRITIS
     Dosage: ORAL
     Route: 048
     Dates: start: 20061027
  2. VALIUM [Concomitant]
  3. PROTONIX [Concomitant]

REACTIONS (15)
  - BURNING SENSATION [None]
  - CONTUSION [None]
  - DIZZINESS [None]
  - FALL [None]
  - JOINT INJURY [None]
  - LIMB INJURY [None]
  - LOSS OF CONSCIOUSNESS [None]
  - MUSCLE STRAIN [None]
  - OEDEMA PERIPHERAL [None]
  - PRURITUS [None]
  - RASH ERYTHEMATOUS [None]
  - STOMACH DISCOMFORT [None]
  - SWELLING FACE [None]
  - URTICARIA [None]
  - VOMITING [None]
